FAERS Safety Report 9223621 (Version 2)
Quarter: 2013Q2

REPORT INFORMATION
  Report Type: Spontaneous
  Country: ZA (occurrence: ZA)
  Receive Date: 20130410
  Receipt Date: 20130417
  Transmission Date: 20140414
  Serious: Yes (Hospitalization)
  Sender: FDA-Public Use
  Company Number: ZA-GLAXOSMITHKLINE-B0880581A

PATIENT
  Age: 32 Year
  Sex: Female

DRUGS (4)
  1. WELLBUTRIN XL [Suspect]
     Indication: BIPOLAR DISORDER
     Dosage: 300MG PER DAY
     Route: 048
  2. LAMOTRIGINE [Suspect]
     Indication: BIPOLAR DISORDER
     Route: 048
  3. LUVOX [Suspect]
     Indication: BIPOLAR DISORDER
     Route: 048
  4. ALCOHOL [Suspect]
     Indication: BIPOLAR DISORDER
     Route: 048

REACTIONS (3)
  - Status epilepticus [Unknown]
  - Nervous system disorder [Unknown]
  - Overdose [Unknown]
